FAERS Safety Report 8538648-5 (Version None)
Quarter: 2012Q3

REPORT INFORMATION
  Report Type: 
  Country: None (occurrence: None)
  Receive Date: 20120718
  Receipt Date: 20120718
  Transmission Date: 20120928
  Serious: Yes (Other)
  Sender: FDA-Public Use
  Company Number: None

PATIENT
  Sex: Female
  Weight: 61.2356 kg

DRUGS (3)
  1. NORTRIPTYLINE HCL [Suspect]
     Indication: ANTIDEPRESSANT THERAPY
  2. DICYCLOMINE [Suspect]
     Indication: IRRITABLE BOWEL SYNDROME
     Dosage: 10 MG TID AC PO
     Route: 048
     Dates: start: 20120501, end: 20120601
  3. AMITRIPTYLINE HCL [Suspect]
     Indication: ANTIDEPRESSANT THERAPY

REACTIONS (5)
  - CONFUSIONAL STATE [None]
  - PARAESTHESIA [None]
  - HALLUCINATION [None]
  - AGITATION [None]
  - HYPOAESTHESIA [None]
